FAERS Safety Report 15739144 (Version 4)
Quarter: 2019Q1

REPORT INFORMATION
  Report Type: Spontaneous
  Country: JP (occurrence: JP)
  Receive Date: 20181219
  Receipt Date: 20190320
  Transmission Date: 20190417
  Serious: Yes (Death, Hospitalization, Other)
  Sender: FDA-Public Use
  Company Number: JP-BRISTOL-MYERS SQUIBB COMPANY-BMS-2018-118572

PATIENT
  Age: 57 Year
  Sex: Male
  Weight: 58 kg

DRUGS (1)
  1. OPDIVO [Suspect]
     Active Substance: NIVOLUMAB
     Indication: HEAD AND NECK CANCER
     Dosage: 174 MG(2017/11/20, 12/4, 12/18)
     Route: 041
     Dates: start: 20171120, end: 20171218

REACTIONS (9)
  - Pain [Not Recovered/Not Resolved]
  - Headache [Not Recovered/Not Resolved]
  - Tumour haemorrhage [Recovering/Resolving]
  - Restless legs syndrome [Not Recovered/Not Resolved]
  - Suicide attempt [Fatal]
  - Malignant neoplasm progression [Unknown]
  - Anxiety [Not Recovered/Not Resolved]
  - Lymphocyte count decreased [Not Recovered/Not Resolved]
  - Completed suicide [Fatal]

NARRATIVE: CASE EVENT DATE: 20171204
